FAERS Safety Report 8579842-7 (Version None)
Quarter: 2012Q3

REPORT INFORMATION
  Report Type: 
  Country: None (occurrence: None)
  Receive Date: 20120808
  Receipt Date: 20120802
  Transmission Date: 20120928
  Serious: Yes (Death)
  Sender: FDA-Public Use
  Company Number: CA-ELI_LILLY_AND_COMPANY-CA201208001071

PATIENT

DRUGS (1)
  1. ADCIRCA [Suspect]
     Dosage: 20 MG, UNKNOWN

REACTIONS (1)
  - CONDITION AGGRAVATED [None]
